FAERS Safety Report 6465656-0 (Version None)
Quarter: 2009Q4

REPORT INFORMATION
  Report Type: 
  Country: None (occurrence: None)
  Receive Date: 20091124
  Receipt Date: 20091109
  Transmission Date: 20100525
  Serious: Yes (Other)
  Sender: FDA-Public Use
  Company Number: AUR-APL-2009-01348

PATIENT
  Age: 29 Year
  Sex: Male

DRUGS (1)
  1. MIRTAZAPINE [Suspect]
     Indication: DEPRESSION
     Dosage: 15MG, DAILY,

REACTIONS (2)
  - MYCOPLASMA TEST POSITIVE [None]
  - STEVENS-JOHNSON SYNDROME [None]
